FAERS Safety Report 5016319-X (Version None)
Quarter: 2006Q2

REPORT INFORMATION
  Report Type: 
  Country: None (occurrence: None)
  Receive Date: 20060526
  Receipt Date: 20060510
  Transmission Date: 20061013
  Serious: Yes (Death, Life-Threatening, Disabling)
  Sender: FDA-Public Use
  Company Number: 2002001580-FJ

PATIENT
  Age: 47 Year
  Sex: Male
  Weight: 67 kg

DRUGS (36)
  1. PROGRAF [Suspect]
     Indication: BONE MARROW TRANSPLANT
     Dosage: SEE IMAGE
     Route: 042
     Dates: start: 20010604, end: 20010628
  2. PROGRAF [Suspect]
     Indication: BONE MARROW TRANSPLANT
     Dosage: SEE IMAGE
     Route: 042
     Dates: start: 20010729, end: 20010730
  3. PROGRAF [Suspect]
     Indication: BONE MARROW TRANSPLANT
     Dosage: SEE IMAGE
     Route: 042
     Dates: start: 20010731, end: 20010803
  4. PROGRAF [Suspect]
     Indication: BONE MARROW TRANSPLANT
     Dosage: SEE IMAGE
     Route: 042
     Dates: start: 20010804, end: 20010805
  5. PROGRAF [Suspect]
     Indication: BONE MARROW TRANSPLANT
     Dosage: SEE IMAGE
     Route: 042
     Dates: start: 20010806, end: 20010806
  6. PROGRAF [Suspect]
     Indication: BONE MARROW TRANSPLANT
     Dosage: SEE IMAGE
     Route: 042
     Dates: start: 20010807, end: 20010814
  7. PROGRAF [Suspect]
     Indication: BONE MARROW TRANSPLANT
     Dosage: SEE IMAGE
     Route: 042
     Dates: start: 20010815, end: 20010815
  8. PROGRAF [Suspect]
     Indication: BONE MARROW TRANSPLANT
     Dosage: SEE IMAGE
     Route: 042
     Dates: start: 20010816, end: 20010821
  9. SOLU-MEDROL [Suspect]
     Indication: GRAFT VERSUS HOST DISEASE
     Dosage: 80 MG, UID/QD, IV NOS; 60 MG, UID/QD, IV NOS; 40 MG, UID/QD, IV NOS
     Route: 042
     Dates: start: 20010628, end: 20010628
  10. SOLU-MEDROL [Suspect]
     Indication: GRAFT VERSUS HOST DISEASE
     Dosage: 80 MG, UID/QD, IV NOS; 60 MG, UID/QD, IV NOS; 40 MG, UID/QD, IV NOS
     Route: 042
     Dates: start: 20010629, end: 20010629
  11. SOLU-MEDROL [Suspect]
     Indication: GRAFT VERSUS HOST DISEASE
     Dosage: 80 MG, UID/QD, IV NOS; 60 MG, UID/QD, IV NOS; 40 MG, UID/QD, IV NOS
     Route: 042
     Dates: start: 20010630, end: 20010703
  12. PREDONINE (PREDNISOLONE SODIUM SUCCINATE) INJECTION [Suspect]
     Indication: GRAFT VERSUS HOST DISEASE
     Dosage: SEE IMAGE
     Route: 042
     Dates: start: 20010704, end: 20010709
  13. PREDONINE (PREDNISOLONE SODIUM SUCCINATE) INJECTION [Suspect]
     Indication: GRAFT VERSUS HOST DISEASE
     Dosage: SEE IMAGE
     Route: 042
     Dates: start: 20010710, end: 20010710
  14. PREDONINE (PREDNISOLONE SODIUM SUCCINATE) INJECTION [Suspect]
     Indication: GRAFT VERSUS HOST DISEASE
     Dosage: SEE IMAGE
     Route: 042
     Dates: start: 20010711, end: 20010711
  15. PREDONINE (PREDNISOLONE SODIUM SUCCINATE) INJECTION [Suspect]
     Indication: GRAFT VERSUS HOST DISEASE
     Dosage: SEE IMAGE
     Route: 042
     Dates: start: 20010712, end: 20010715
  16. PREDONINE (PREDNISOLONE SODIUM SUCCINATE) INJECTION [Suspect]
     Indication: GRAFT VERSUS HOST DISEASE
     Dosage: SEE IMAGE
     Route: 042
     Dates: start: 20010716
  17. METHOTREXATE [Concomitant]
  18. TAGAMET (CIMETIDINE HYDROCHLORIDE) INJECTION [Concomitant]
  19. CICLOSPORIN INJECTION [Concomitant]
  20. CEFTAZIDIME [Concomitant]
  21. TIENAM (IMIPENEM, CILASTATIN SODIUM) INJECTION [Concomitant]
  22. DENOSINE (GANCICLOVIR) INJECTION [Concomitant]
  23. FOSCAVIR [Concomitant]
  24. SANDOSTATIN (OCTREOTIDE ACETATE) INJECTION [Concomitant]
  25. BAKTAR (SULFAMETHOXAZOLE, TRIMETHOPRIM) TABLET [Concomitant]
  26. CRAVIT (LEVOFLOXACIN) TABLET [Concomitant]
  27. DIFLUCAN (FLUCONAZOLE) CAPSULE [Concomitant]
  28. DIFLUCAN [Concomitant]
  29. ZANTAC [Concomitant]
  30. ALOSITOL TABLET [Concomitant]
  31. CYCLOPHOSPHAMIDE [Concomitant]
  32. GASTER TABLET [Concomitant]
  33. ZOVIRAX [Concomitant]
  34. VANCOMYCIN (VANCOMYCIN) POWDER [Concomitant]
  35. VANCOMYCIN [Concomitant]
  36. DALACIN INJECTION [Concomitant]

REACTIONS (13)
  - COMPLICATIONS OF BONE MARROW TRANSPLANT [None]
  - CONVULSION [None]
  - DIARRHOEA [None]
  - DRUG INEFFECTIVE [None]
  - ENCEPHALITIS HERPES [None]
  - GRAFT VERSUS HOST DISEASE [None]
  - HAEMODIALYSIS [None]
  - HUMAN HERPESVIRUS 6 INFECTION [None]
  - MELAENA [None]
  - SUBARACHNOID HAEMORRHAGE [None]
  - THROMBOTIC MICROANGIOPATHY [None]
  - TOXIC INDUCED ENCEPHALOPATHY [None]
  - VENOOCCLUSIVE LIVER DISEASE [None]
